FAERS Safety Report 6111079-3 (Version None)
Quarter: 2009Q1

REPORT INFORMATION
  Report Type: 
  Country: None (occurrence: None)
  Receive Date: 20090311
  Receipt Date: 20080410
  Transmission Date: 20090719
  Serious: No
  Sender: FDA-Public Use
  Company Number: US-KINGPHARMUSA00001-K200800433

PATIENT
  Sex: Male

DRUGS (6)
  1. ALTACE [Suspect]
     Indication: HYPERTENSION
     Dosage: 2.5 MG, QD
     Route: 048
     Dates: start: 20060101, end: 20070101
  2. ALTACE [Suspect]
     Dosage: 5 MG, QD
     Route: 048
     Dates: start: 20070101, end: 20080201
  3. ALTACE [Suspect]
     Dosage: 2.5 MG, QD
     Route: 048
     Dates: start: 20080201
  4. LIPITOR [Concomitant]
     Indication: BLOOD CHOLESTEROL INCREASED
     Dosage: UNK, QD
  5. ACIPHEX [Concomitant]
     Dosage: UNK, QD
  6. UROXATRAL [Concomitant]
     Indication: HYPERTENSION
     Dosage: UNK, QD
     Dates: start: 20080201

REACTIONS (2)
  - DRUG INEFFECTIVE [None]
  - HYPOTENSION [None]
